FAERS Safety Report 23454915 (Version 14)
Quarter: 2025Q3

REPORT INFORMATION
  Report Type: Report from Study
  Country: US (occurrence: US)
  Receive Date: 20240130
  Receipt Date: 20250716
  Transmission Date: 20251020
  Serious: Yes (Hospitalization, Other)
  Sender: TAKEDA
  Company Number: US-TAKEDA-US202013886

PATIENT
  Age: 78 Year
  Sex: Female
  Weight: 59 kg

DRUGS (29)
  1. LANADELUMAB [Suspect]
     Active Substance: LANADELUMAB
     Indication: Immune system disorder
     Dosage: 300 MILLIGRAM, Q2WEEKS
     Dates: start: 20191102
  2. LANADELUMAB [Suspect]
     Active Substance: LANADELUMAB
     Dosage: 300 MILLIGRAM, Q2WEEKS
  3. LANADELUMAB [Suspect]
     Active Substance: LANADELUMAB
     Dosage: 300 MILLIGRAM, Q2WEEKS
  4. FUROSEMIDE [Concomitant]
     Active Substance: FUROSEMIDE
  5. METOPROLOL SUCCINATE [Concomitant]
     Active Substance: METOPROLOL SUCCINATE
  6. ACETAMINOPHEN\HYDROCODONE [Concomitant]
     Active Substance: ACETAMINOPHEN\HYDROCODONE
  7. POTASSIUM CHLORIDE [Concomitant]
     Active Substance: POTASSIUM CHLORIDE
  8. ATORVASTATIN CALCIUM [Concomitant]
     Active Substance: ATORVASTATIN CALCIUM
  9. TRAZODONE HCL [Concomitant]
     Active Substance: TRAZODONE HYDROCHLORIDE
  10. CORTISONE [Concomitant]
     Active Substance: CORTISONE
  11. TRAMADOL HCL [Concomitant]
     Active Substance: TRAMADOL HYDROCHLORIDE
  12. ASPIRIN [Concomitant]
     Active Substance: ASPIRIN
  13. ARMOUR THYROID [Concomitant]
     Active Substance: THYROID, PORCINE
  14. AMBIEN [Concomitant]
     Active Substance: ZOLPIDEM TARTRATE
  15. VITAMIN D3 [Concomitant]
     Active Substance: CHOLECALCIFEROL
  16. MODERNA COVID-19 VACCINE [Concomitant]
     Active Substance: ELASOMERAN
  17. SERTRALINE HYDROCHLORIDE [Concomitant]
     Active Substance: SERTRALINE HYDROCHLORIDE
  18. FOLIC ACID\IRON [Concomitant]
     Active Substance: FOLIC ACID\IRON
  19. TRAMADOL [Concomitant]
     Active Substance: TRAMADOL
  20. ATORVASTATIN [Concomitant]
     Active Substance: ATORVASTATIN
  21. SERTRALINE [Concomitant]
     Active Substance: SERTRALINE HYDROCHLORIDE
  22. NORCO [Concomitant]
     Active Substance: ACETAMINOPHEN\HYDROCODONE BITARTRATE
  23. TRAZODONE [Concomitant]
     Active Substance: TRAZODONE HYDROCHLORIDE
  24. AMLODIPINE BESYLATE [Concomitant]
     Active Substance: AMLODIPINE BESYLATE
  25. METOPROLOL [Concomitant]
     Active Substance: METOPROLOL
  26. ACETAMINOPHEN [Concomitant]
     Active Substance: ACETAMINOPHEN
  27. ICATIBANT [Concomitant]
     Active Substance: ICATIBANT ACETATE
  28. VITAMIN B [Concomitant]
     Active Substance: VITAMIN B
  29. OXYGEN [Concomitant]
     Active Substance: OXYGEN

REACTIONS (21)
  - Oxygen saturation decreased [Unknown]
  - Aspiration [Unknown]
  - Ear infection [Unknown]
  - Pneumonia [Unknown]
  - Sinus disorder [Unknown]
  - Cystitis [Unknown]
  - Dementia [Unknown]
  - Atrial fibrillation [Unknown]
  - Fall [Unknown]
  - Asthenia [Unknown]
  - Disorientation [Unknown]
  - White blood cell count decreased [Unknown]
  - Hereditary angioedema [Not Recovered/Not Resolved]
  - Rhinorrhoea [Recovered/Resolved]
  - Increased upper airway secretion [Unknown]
  - Haemorrhoids [Unknown]
  - Vertigo [Unknown]
  - Product distribution issue [Unknown]
  - Product use issue [Unknown]
  - Product dose omission issue [Unknown]
  - Inappropriate schedule of product administration [Unknown]

NARRATIVE: CASE EVENT DATE: 20241107
